FAERS Safety Report 18464583 (Version 1)
Quarter: 2020Q4

REPORT INFORMATION
  Report Type: Spontaneous
  Country: NL (occurrence: NL)
  Receive Date: 20201104
  Receipt Date: 20201104
  Transmission Date: 20210114
  Serious: Yes (Hospitalization)
  Sender: FDA-Public Use
  Company Number: NL-JNJFOC-A-CH2018-166034

PATIENT
  Age: 60 Year
  Sex: Female

DRUGS (3)
  1. TRACLEER [Suspect]
     Active Substance: BOSENTAN
     Dosage: 125 MG, BID
     Route: 048
     Dates: start: 20171223
  2. TRACLEER [Suspect]
     Active Substance: BOSENTAN
     Indication: SKIN ULCER
     Dosage: 62.5 MG, BID
     Route: 048
  3. TRACLEER [Suspect]
     Active Substance: BOSENTAN
     Dosage: 62.5 MG, BID
     Route: 048

REACTIONS (6)
  - Hepatic enzyme increased [Unknown]
  - Skin ulcer [Unknown]
  - Hospitalisation [Unknown]
  - Condition aggravated [Unknown]
  - Product dose omission issue [Unknown]
  - Intercepted product prescribing error [Unknown]
